FAERS Safety Report 5829605-8 (Version None)
Quarter: 2008Q3

REPORT INFORMATION
  Report Type: 
  Country: None (occurrence: None)
  Receive Date: 20080731
  Receipt Date: 20080719
  Transmission Date: 20090109
  Serious: Yes (Hospitalization, Other)
  Sender: FDA-Public Use
  Company Number: US-PFIZER INC-2008061002

PATIENT
  Sex: Male

DRUGS (7)
  1. LYRICA [Suspect]
     Indication: SCIATICA
  2. COLESTID [Suspect]
     Indication: DIARRHOEA
  3. ALL OTHER THERAPEUTIC PRODUCTS [Suspect]
     Indication: SCIATICA
  4. ATENOLOL [Concomitant]
  5. LIPITOR [Concomitant]
  6. NIASPAN [Concomitant]
  7. VITAMIN TAB [Concomitant]

REACTIONS (8)
  - ASTHENIA [None]
  - DIARRHOEA [None]
  - DRUG INEFFECTIVE [None]
  - HYPOTENSION [None]
  - LOSS OF CONSCIOUSNESS [None]
  - SCIATICA [None]
  - ULCER HAEMORRHAGE [None]
  - WITHDRAWAL SYNDROME [None]
